FAERS Safety Report 20032567 (Version 1)
Quarter: 2021Q4

REPORT INFORMATION
  Report Type: Spontaneous
  Country: US (occurrence: US)
  Receive Date: 20211103
  Receipt Date: 20211103
  Transmission Date: 20220303
  Serious: No
  Sender: FDA-Public Use
  Company Number: US-009507513-2110USA003764

PATIENT
  Sex: Female

DRUGS (1)
  1. BELSOMRA [Suspect]
     Active Substance: SUVOREXANT
     Dosage: 5 MG; TAKE 1 TABLET BY MOUTH ONCE DAILY AT BEEDTIME AS NEEDED
     Route: 048

REACTIONS (5)
  - Drug effect less than expected [Unknown]
  - Gastric disorder [Unknown]
  - Product packaging issue [Unknown]
  - Product compounding quality issue [Unknown]
  - Product quality issue [Unknown]
